FAERS Safety Report 10740664 (Version 1)
Quarter: 2015Q1

REPORT INFORMATION
  Report Type: Spontaneous
  Country: US (occurrence: US)
  Receive Date: 20150127
  Receipt Date: 20150127
  Transmission Date: 20150721
  Serious: No
  Sender: FDA-Public Use
  Company Number: US-ASTRAZENECA-2015SE08124

PATIENT
  Age: 58 Year
  Sex: Female

DRUGS (11)
  1. TRADJENTA [Concomitant]
     Active Substance: LINAGLIPTIN
  2. ASPIRIN. [Concomitant]
     Active Substance: ASPIRIN
  3. PLAVIX [Concomitant]
     Active Substance: CLOPIDOGREL BISULFATE
  4. HUMALOG [Concomitant]
     Active Substance: INSULIN LISPRO
  5. VALIUM [Concomitant]
     Active Substance: DIAZEPAM
  6. FENOFIBRATE. [Concomitant]
     Active Substance: FENOFIBRATE
  7. OXYCODONE [Concomitant]
     Active Substance: OXYCODONE
  8. FARXIGA [Suspect]
     Active Substance: DAPAGLIFLOZIN PROPANEDIOL
     Indication: TYPE 2 DIABETES MELLITUS
     Route: 048
     Dates: start: 20141201
  9. LOSARTAN [Concomitant]
     Active Substance: LOSARTAN
  10. CARVEDILOL. [Concomitant]
     Active Substance: CARVEDILOL
  11. METFORMIN [Concomitant]
     Active Substance: METFORMIN HYDROCHLORIDE

REACTIONS (3)
  - Weight decreased [Unknown]
  - Drug dose omission [Unknown]
  - Incorrect dose administered [Unknown]
